FAERS Safety Report 14537786 (Version 1)
Quarter: 2018Q1

REPORT INFORMATION
  Report Type: Spontaneous
  Country: FR (occurrence: FR)
  Receive Date: 20180215
  Receipt Date: 20180215
  Transmission Date: 20180509
  Serious: Yes (Other)
  Sender: FDA-Public Use
  Company Number: FR-MERCK KGAA-2042077

PATIENT
  Age: 67 Year
  Sex: Female
  Weight: 87 kg

DRUGS (3)
  1. NOVOTHYROX [Suspect]
     Active Substance: LEVOTHYROXINE SODIUM
     Indication: HYPOTHYROIDISM
     Route: 048
     Dates: start: 201705, end: 201711
  2. L THYROXIN HENNING [Concomitant]
     Active Substance: LEVOTHYROXINE SODIUM
     Route: 048
     Dates: start: 201711
  3. NIVAQUINE [Concomitant]
     Active Substance: CHLOROQUINE
     Route: 048

REACTIONS (12)
  - Asthenia [Recovering/Resolving]
  - Upper limb fracture [Not Recovered/Not Resolved]
  - Gastrointestinal disorder [Recovering/Resolving]
  - Hot flush [Recovering/Resolving]
  - Disturbance in attention [Recovering/Resolving]
  - Vertigo [Recovering/Resolving]
  - Irritability [Recovering/Resolving]
  - Hypersensitivity [Recovering/Resolving]
  - Blood thyroid stimulating hormone increased [Not Recovered/Not Resolved]
  - Fall [Recovered/Resolved with Sequelae]
  - Nausea [Recovering/Resolving]
  - Weight increased [Recovering/Resolving]

NARRATIVE: CASE EVENT DATE: 201706
